FAERS Safety Report 6519866-4 (Version None)
Quarter: 2009Q4

REPORT INFORMATION
  Report Type: 
  Country: None (occurrence: None)
  Receive Date: 20091228
  Receipt Date: 20091222
  Transmission Date: 20100525
  Serious: Yes (Hospitalization)
  Sender: FDA-Public Use
  Company Number: US-ELI_LILLY_AND_COMPANY-US200912005042

PATIENT
  Sex: Male
  Weight: 76 kg

DRUGS (5)
  1. GEMCITABINE HCL [Suspect]
     Indication: ANGIOIMMUNOBLASTIC T-CELL LYMPHOMA
     Dosage: 800 MG, OTHER
     Route: 042
     Dates: start: 20090819
  2. OTHER PHARMA COMPANY INV DRUG [Suspect]
     Indication: ANGIOIMMUNOBLASTIC T-CELL LYMPHOMA
     Dosage: 20 MG, OTHER
     Route: 042
     Dates: start: 20090818
  3. FLUTICASONE W/SALMETEROL [Concomitant]
     Indication: COUGH
     Dates: start: 20090901
  4. CYANOCOBALAMIN [Concomitant]
     Indication: VITAMIN SUPPLEMENTATION
  5. FOLIC ACID [Concomitant]
     Indication: VITAMIN SUPPLEMENTATION

REACTIONS (3)
  - CHILLS [None]
  - PNEUMONIA [None]
  - PYREXIA [None]
